FAERS Safety Report 21364725 (Version 4)
Quarter: 2022Q4

REPORT INFORMATION
  Report Type: Spontaneous
  Country: US (occurrence: US)
  Receive Date: 20220922
  Receipt Date: 20221130
  Transmission Date: 20230113
  Serious: Yes (Hospitalization, Other)
  Sender: FDA-Public Use
  Company Number: US-NOVARTISTESTPH-NVSC2022US211466

PATIENT
  Age: 19 Day

DRUGS (1)
  1. ZOLGENSMA [Suspect]
     Active Substance: ONASEMNOGENE ABEPARVOVEC-XIOI
     Indication: Spinal muscular atrophy
     Dosage: 1 MG/KG, ONCE/SINGLE
     Route: 042
     Dates: start: 202208, end: 202208

REACTIONS (5)
  - Liver function test increased [Not Recovered/Not Resolved]
  - Blood triglycerides increased [Unknown]
  - Blood fibrinogen increased [Unknown]
  - Serum ferritin increased [Unknown]
  - Interleukin-2 receptor increased [Recovering/Resolving]

NARRATIVE: CASE EVENT DATE: 20220901
